FAERS Safety Report 5935090-8 (Version None)
Quarter: 2008Q4

REPORT INFORMATION
  Report Type: 
  Country: None (occurrence: None)
  Receive Date: 20081030
  Receipt Date: 20080929
  Transmission Date: 20090506
  Serious: No
  Sender: FDA-Public Use
  Company Number: US-BAYER-200824930NA

PATIENT
  Age: 22 Year
  Sex: Female
  Weight: 54 kg

DRUGS (1)
  1. MIRENA [Suspect]
     Indication: CONTRACEPTION
     Route: 015
     Dates: start: 20080101

REACTIONS (4)
  - DYSPAREUNIA [None]
  - PELVIC PAIN [None]
  - PROCEDURAL PAIN [None]
  - UNEVALUABLE EVENT [None]
